FAERS Safety Report 17616810 (Version 2)
Quarter: 2020Q2

REPORT INFORMATION
  Report Type: Spontaneous
  Country: US (occurrence: US)
  Receive Date: 20200402
  Receipt Date: 20200512
  Transmission Date: 20200713
  Serious: Yes (Death, Other)
  Sender: FDA-Public Use
  Company Number: US-SYNEX-T202001453

PATIENT
  Age: 44 Year
  Sex: Female

DRUGS (1)
  1. INOMAX [Suspect]
     Active Substance: NITRIC OXIDE
     Indication: CORONAVIRUS INFECTION
     Dosage: PER INHALATION
     Route: 055
     Dates: end: 20200324

REACTIONS (6)
  - Cardiac valve disease [Unknown]
  - Drug effective for unapproved indication [Unknown]
  - Product use in unapproved indication [Unknown]
  - Endocarditis [Unknown]
  - Cardiogenic shock [Fatal]
  - Product use issue [Unknown]

NARRATIVE: CASE EVENT DATE: 20200324
